FAERS Safety Report 16775867 (Version 3)
Quarter: 2019Q4

REPORT INFORMATION
  Report Type: Spontaneous
  Country: US (occurrence: US)
  Receive Date: 20190905
  Receipt Date: 20191003
  Transmission Date: 20200122
  Serious: No
  Sender: FDA-Public Use
  Company Number: US-PFIZER INC-2019379452

PATIENT
  Sex: Female

DRUGS (2)
  1. KETOROLAC TROMETHAMINE. [Suspect]
     Active Substance: KETOROLAC TROMETHAMINE
     Indication: OSTEOPOROSIS
     Dosage: UNK (60MG/2ML VIAL INJECTION)
  2. KETOROLAC TROMETHAMINE. [Suspect]
     Active Substance: KETOROLAC TROMETHAMINE
     Dosage: UNK, AS NEEDED

REACTIONS (4)
  - Headache [Unknown]
  - Vitamin D abnormal [Unknown]
  - Off label use [Unknown]
  - Product use in unapproved indication [Unknown]
